FAERS Safety Report 7071274-6 (Version None)
Quarter: 2010Q4

REPORT INFORMATION
  Report Type: 
  Country: None (occurrence: None)
  Receive Date: 20101028
  Receipt Date: 20101028
  Transmission Date: 20110411
  Serious: Yes (Life-Threatening)
  Sender: FDA-Public Use
  Company Number: None

PATIENT
  Age: 30 Year
  Sex: Female
  Weight: 47.6277 kg

DRUGS (4)
  1. ZOVIA 1/50E-28 [Suspect]
     Dosage: DAILY
  2. ZOVIA 1/35E-21 [Suspect]
  3. ORTHO TRI-CYCLEN [Suspect]
  4. YAZ [Suspect]

REACTIONS (3)
  - BLOOD PRESSURE FLUCTUATION [None]
  - BLOOD PRESSURE INCREASED [None]
  - HYPERHIDROSIS [None]
